FAERS Safety Report 25759045 (Version 4)
Quarter: 2025Q3

REPORT INFORMATION
  Report Type: Report from Study
  Country: CA (occurrence: CA)
  Receive Date: 20250904
  Receipt Date: 20250916
  Transmission Date: 20251020
  Serious: Yes (Hospitalization, Other)
  Sender: TEVA
  Company Number: CA-TEVA-VS-3365349

PATIENT
  Age: 44 Year
  Sex: Female

DRUGS (5)
  1. AJOVY [Suspect]
     Active Substance: FREMANEZUMAB-VFRM
     Indication: Migraine prophylaxis
     Dosage: LAST DOSE ADMINISTERED DATE: 2025-08-06
     Route: 058
     Dates: start: 20250806
  2. VENLAFAXINE [Concomitant]
     Active Substance: VENLAFAXINE HYDROCHLORIDE
     Indication: Product used for unknown indication
  3. GABAPENTIN [Concomitant]
     Active Substance: GABAPENTIN
     Indication: Product used for unknown indication
  4. TOPIRAMATE [Concomitant]
     Active Substance: TOPIRAMATE
     Indication: Product used for unknown indication
  5. BOTOX [Concomitant]
     Active Substance: ONABOTULINUMTOXINA
     Indication: Product used for unknown indication

REACTIONS (18)
  - Injection site infection [Not Recovered/Not Resolved]
  - Pyrexia [Recovered/Resolved]
  - Paralysis [Not Recovered/Not Resolved]
  - Hypersensitivity [Unknown]
  - Injection site hypersensitivity [Not Recovered/Not Resolved]
  - Myalgia [Unknown]
  - Headache [Unknown]
  - Injection site erythema [Not Recovered/Not Resolved]
  - Bone pain [Unknown]
  - Injection site swelling [Not Recovered/Not Resolved]
  - Pain [Unknown]
  - Chills [Unknown]
  - Injection site warmth [Not Recovered/Not Resolved]
  - Pain [Recovered/Resolved]
  - Muscular weakness [Unknown]
  - Loss of personal independence in daily activities [Unknown]
  - Joint swelling [Unknown]
  - Impaired driving ability [Unknown]

NARRATIVE: CASE EVENT DATE: 20250101
